FAERS Safety Report 9514722 (Version 1)
Quarter: 2013Q3

REPORT INFORMATION
  Report Type: Spontaneous
  Country: AU (occurrence: AU)
  Receive Date: 20130911
  Receipt Date: 20130911
  Transmission Date: 20140515
  Serious: Yes (Other)
  Sender: FDA-Public Use
  Company Number: AU-ROCHE-1270208

PATIENT
  Age: 69 Year
  Sex: Male

DRUGS (7)
  1. CAPECITABINE [Suspect]
     Indication: OESOPHAGEAL CANCER METASTATIC
     Route: 065
  2. DOCETAXEL [Concomitant]
     Indication: OESOPHAGEAL CANCER METASTATIC
     Dosage: 8 CYCLES
     Route: 065
     Dates: end: 201307
  3. FOLINIC ACID [Concomitant]
     Indication: OESOPHAGEAL CANCER METASTATIC
  4. FLUOROURACIL [Concomitant]
     Indication: OESOPHAGEAL CANCER METASTATIC
  5. IRINOTECAN [Concomitant]
     Indication: OESOPHAGEAL CANCER METASTATIC
  6. EPIRUBICIN [Concomitant]
     Dosage: 10 CYCLES
     Route: 065
     Dates: end: 201111
  7. CISPLATIN [Concomitant]
     Dosage: 10 CYCLES
     Route: 065
     Dates: end: 201111

REACTIONS (1)
  - Disease progression [Unknown]
